FAERS Safety Report 10036312 (Version 1)
Quarter: 2014Q1

REPORT INFORMATION
  Report Type: Spontaneous
  Country: US (occurrence: None)
  Receive Date: 20140306
  Receipt Date: 20140306
  Transmission Date: 20141002
  Serious: Yes (Hospitalization)
  Sender: FDA-Public Use
  Company Number: 163-21880-11092486

PATIENT
  Age: 55 Year
  Sex: Male

DRUGS (1)
  1. REVLIMID [Suspect]
     Indication: PLASMA CELL MYELOMA
     Dosage: 25 MG, 21 IN 21 D, PO
     Route: 048
     Dates: start: 201009

REACTIONS (7)
  - Pneumonia [None]
  - Eye discharge [None]
  - Loss of libido [None]
  - Erectile dysfunction [None]
  - Dehydration [None]
  - Asthenia [None]
  - White blood cell count decreased [None]
